FAERS Safety Report 12949117 (Version 1)
Quarter: 2016Q4

REPORT INFORMATION
  Report Type: Spontaneous
  Country: US (occurrence: US)
  Receive Date: 20161117
  Receipt Date: 20161117
  Transmission Date: 20170207
  Serious: No
  Sender: FDA-Public Use
  Company Number: US-PFIZER INC-2016531261

PATIENT
  Age: 67 Year
  Sex: Male

DRUGS (1)
  1. CAVERJECT [Suspect]
     Active Substance: ALPROSTADIL
     Indication: ERECTILE DYSFUNCTION
     Dosage: 1 ML OF 40 MCG SOLUTION INJECTED INTO PENIS AS NEEDED
     Route: 017

REACTIONS (2)
  - Drug ineffective [Unknown]
  - Drug administration error [Unknown]
